FAERS Safety Report 9889478 (Version 1)
Quarter: 2014Q1

REPORT INFORMATION
  Report Type: Report from Study
  Country: US (occurrence: US)
  Receive Date: 20140211
  Receipt Date: 20140211
  Transmission Date: 20141002
  Serious: Yes (Hospitalization)
  Sender: FDA-Public Use
  Company Number: US-ABBVIE-14P-163-1196934-00

PATIENT
  Sex: Female
  Weight: 63.56 kg

DRUGS (12)
  1. HUMIRA [Suspect]
     Indication: COLITIS ULCERATIVE
     Dosage: ONE DOSE
     Dates: start: 201303, end: 201303
  2. HUMIRA [Suspect]
     Dosage: ONE DOSE
     Dates: start: 2013, end: 2013
  3. HUMIRA [Suspect]
     Dates: start: 2013, end: 201310
  4. HUMIRA [Suspect]
     Dosage: ONE DOSE
     Dates: start: 201310, end: 201310
  5. HUMIRA [Suspect]
     Dosage: ONE DOSE
     Dates: start: 2013, end: 2013
  6. HUMIRA [Suspect]
     Dates: start: 2013, end: 20140107
  7. HUMIRA [Suspect]
     Dates: start: 20140129
  8. PREDNISONE [Suspect]
     Indication: COLITIS ULCERATIVE
     Route: 048
     Dates: start: 201310
  9. PREDNISONE [Suspect]
     Dosage: TAPERED DOSES FROM 40 MG DOWN TO 10 MG
     Route: 048
     Dates: start: 2013, end: 2013
  10. PREDNISONE [Suspect]
     Route: 048
  11. PREDNISONE [Suspect]
     Dosage: 20 MG, TAPERED DOWN TO 5 MG
     Dates: start: 20131227, end: 20140130
  12. CALCIUM [Concomitant]
     Indication: MINERAL SUPPLEMENTATION

REACTIONS (6)
  - Hypophagia [Recovered/Resolved]
  - Weight decreased [Recovered/Resolved]
  - Colitis ulcerative [Recovered/Resolved]
  - Diarrhoea [Recovered/Resolved]
  - Colitis ulcerative [Recovered/Resolved]
  - Weight increased [Not Recovered/Not Resolved]
